FAERS Safety Report 7534411-2 (Version None)
Quarter: 2011Q2

REPORT INFORMATION
  Report Type: 
  Country: None (occurrence: None)
  Receive Date: 20110608
  Receipt Date: 20110601
  Transmission Date: 20111010
  Serious: Yes (Other)
  Sender: FDA-Public Use
  Company Number: FR-MERCK-1106FRA00028

PATIENT
  Age: 20 Year
  Sex: Male

DRUGS (1)
  1. STROMECTOL [Suspect]
     Indication: ACARODERMATITIS
     Route: 048
     Dates: start: 20110215, end: 20110215

REACTIONS (1)
  - HEPATITIS CHOLESTATIC [None]
